FAERS Safety Report 13826327 (Version 1)
Quarter: 2017Q3

REPORT INFORMATION
  Report Type: Spontaneous
  Country: US (occurrence: US)
  Receive Date: 20170802
  Receipt Date: 20170802
  Transmission Date: 20171127
  Serious: No
  Sender: FDA-Public Use
  Company Number: US-PERRIGO-17US003028

PATIENT
  Age: 84 Year
  Sex: Male
  Weight: 74.83 kg

DRUGS (7)
  1. ATORVASTATIN                       /01326102/ [Concomitant]
     Active Substance: ATORVASTATIN
     Indication: CARDIAC DISORDER
     Dosage: UNKNOWN, UNKNOWN
     Route: 048
  2. WARFARIN [Concomitant]
     Active Substance: WARFARIN
     Indication: CARDIAC DISORDER
     Dosage: UNKNOWN, UNKNOWN
     Route: 048
  3. METOPROLOL. [Concomitant]
     Active Substance: METOPROLOL
     Indication: CARDIAC DISORDER
     Dosage: UNKNOWN, UNKNOWN
     Route: 048
  4. TERAZOSIN                          /00685102/ [Concomitant]
     Indication: CARDIAC DISORDER
     Dosage: UNKNOWN, UNKNOWN
     Route: 048
  5. ECONAZOLE NITRATE. [Suspect]
     Active Substance: ECONAZOLE NITRATE
     Indication: CANDIDA INFECTION
     Dosage: SMALL AMOUNT, QD
     Route: 061
     Dates: start: 20161016, end: 201611
  6. FISH OIL [Concomitant]
     Active Substance: FISH OIL
     Indication: SUPPLEMENTATION THERAPY
     Dosage: UNKNOWN, UNKNOWN
     Route: 048
  7. PANTOPRAZOLE [Concomitant]
     Active Substance: PANTOPRAZOLE
     Indication: CARDIAC DISORDER
     Dosage: UNKNOWN, UNKNOWN
     Route: 048

REACTIONS (1)
  - Drug ineffective [Unknown]

NARRATIVE: CASE EVENT DATE: 20161016
